FAERS Safety Report 23235435 (Version 1)
Quarter: 2023Q4

REPORT INFORMATION
  Report Type: Spontaneous
  Country: NL (occurrence: NL)
  Receive Date: 20231128
  Receipt Date: 20231128
  Transmission Date: 20240109
  Serious: Yes (Hospitalization)
  Sender: FDA-Public Use
  Company Number: None

PATIENT
  Age: 51 Year
  Sex: Female
  Weight: 103 kg

DRUGS (5)
  1. BEVACIZUMAB [Suspect]
     Active Substance: BEVACIZUMAB
     Indication: Macular degeneration
     Dosage: 1,25 MG 1 INJECTION OF 0,05 ML, ONCE PER 4 WEEK
     Dates: start: 20010101
  2. BISACODYL [Concomitant]
     Active Substance: BISACODYL
     Dosage: 5 MG
  3. INSULIN GLARGINE [Concomitant]
     Active Substance: INSULIN GLARGINE
     Dosage: 100 UNITS/ML
  4. EUTHYROX [Concomitant]
     Active Substance: LEVOTHYROXINE SODIUM
     Dosage: 125 UG
  5. INSULIN ASPART [Concomitant]
     Active Substance: INSULIN ASPART
     Dosage: INFUSION FLUID, 1 UNIT/ML (UNITS PER MILLILITER)

REACTIONS (2)
  - Renal impairment [Recovering/Resolving]
  - Off label use [Unknown]
